FAERS Safety Report 25853587 (Version 1)
Quarter: 2025Q3

REPORT INFORMATION
  Report Type: Spontaneous
  Country: US (occurrence: None)
  Receive Date: 20250926
  Receipt Date: 20250926
  Transmission Date: 20251021
  Serious: Yes (Hospitalization, Disabling)
  Sender: FDA-CTU
  Company Number: None

PATIENT
  Age: 74 Year
  Sex: Female
  Weight: 78.75 kg

DRUGS (8)
  1. LEFLUNOMIDE [Suspect]
     Active Substance: LEFLUNOMIDE
     Indication: Systemic lupus erythematosus
     Dosage: OTHER QUANTITY : 1 TABLET(S);?FREQUENCY : DAILY;?
     Route: 048
  2. VALSARTAN [Concomitant]
     Active Substance: VALSARTAN
  3. furesomide [Concomitant]
  4. ATENOLOL [Concomitant]
     Active Substance: ATENOLOL
  5. OMEPRAZOLE [Concomitant]
     Active Substance: OMEPRAZOLE
  6. PREGABALIN [Concomitant]
     Active Substance: PREGABALIN
  7. ALLOPURINOL [Concomitant]
     Active Substance: ALLOPURINOL
  8. ELIQUIS [Concomitant]
     Active Substance: APIXABAN

REACTIONS (9)
  - Fatigue [None]
  - Cough [None]
  - Hypersomnia [None]
  - Cellulitis [None]
  - Dehydration [None]
  - Renal disorder [None]
  - Arthralgia [None]
  - Arthralgia [None]
  - Arthralgia [None]

NARRATIVE: CASE EVENT DATE: 20250920
